FAERS Safety Report 11757179 (Version 1)
Quarter: 2015Q4

REPORT INFORMATION
  Report Type: Spontaneous
  Country: CN (occurrence: CN)
  Receive Date: 20151120
  Receipt Date: 20151120
  Transmission Date: 20160304
  Serious: Yes (Other)
  Sender: FDA-Public Use
  Company Number: CN-SUN PHARMACEUTICAL INDUSTRIES LTD-2015R1-96527

PATIENT
  Age: 28 Year
  Sex: Female

DRUGS (1)
  1. AMLODIPINE [Suspect]
     Active Substance: AMLODIPINE BESYLATE
     Indication: PRODUCT USED FOR UNKNOWN INDICATION
     Dosage: 84 DF, SINGLE
     Route: 048

REACTIONS (3)
  - Overdose [Recovering/Resolving]
  - Respiratory distress [Recovering/Resolving]
  - Shock [Recovering/Resolving]
